FAERS Safety Report 4434502-9 (Version None)
Quarter: 2004Q3

REPORT INFORMATION
  Report Type: 
  Country: None (occurrence: None)
  Receive Date: 20040726
  Receipt Date: 20040415
  Transmission Date: 20050211
  Serious: No
  Sender: FDA-Public Use
  Company Number: USA040464937

PATIENT
  Age: 50 Year
  Sex: Female
  Weight: 45 kg

DRUGS (4)
  1. FORTEO [Suspect]
     Indication: HEPATIC CIRRHOSIS
     Dosage: 20 UG/1 DAY
     Dates: start: 20040409
  2. FORTEO [Suspect]
     Indication: INCREASED TENDENCY TO BRUISE
     Dosage: 20 UG/1 DAY
     Dates: start: 20040409
  3. FORTEO [Suspect]
     Indication: KYPHOSIS
     Dosage: 20 UG/1 DAY
     Dates: start: 20040409
  4. FORTEO [Suspect]
     Indication: OSTEOPOROSIS
     Dosage: 20 UG/1 DAY
     Dates: start: 20040409

REACTIONS (3)
  - ARTHRALGIA [None]
  - INJECTION SITE HAEMORRHAGE [None]
  - INJECTION SITE URTICARIA [None]
